FAERS Safety Report 13665084 (Version 2)
Quarter: 2020Q2

REPORT INFORMATION
  Report Type: Spontaneous
  Country: US (occurrence: US)
  Receive Date: 20170619
  Receipt Date: 20200612
  Transmission Date: 20200713
  Serious: Yes (Death, Other)
  Sender: FDA-Public Use
  Company Number: US-BRISTOL-MYERS SQUIBB COMPANY-BMS-2017-053894

PATIENT
  Sex: Female

DRUGS (2)
  1. OPDIVO [Suspect]
     Active Substance: NIVOLUMAB
     Indication: LUNG CARCINOMA CELL TYPE UNSPECIFIED STAGE I
     Route: 065
  2. OPDIVO [Suspect]
     Active Substance: NIVOLUMAB
     Indication: VULVAL CANCER
     Dosage: 157 MG, UNK
     Route: 042
     Dates: start: 20170516, end: 20170530

REACTIONS (2)
  - Intentional product use issue [Unknown]
  - Death [Fatal]
